FAERS Safety Report 13395797 (Version 1)
Quarter: 2017Q2

REPORT INFORMATION
  Report Type: Spontaneous
  Country: CN (occurrence: CN)
  Receive Date: 20170403
  Receipt Date: 20170403
  Transmission Date: 20170830
  Serious: Yes (Hospitalization, Other)
  Sender: FDA-Public Use
  Company Number: PHHY2017CN045166

PATIENT
  Age: 70 Year
  Sex: Female

DRUGS (5)
  1. METOPROLOL. [Suspect]
     Active Substance: METOPROLOL
     Indication: PRODUCT USED FOR UNKNOWN INDICATION
     Route: 048
  2. DIOVAN [Suspect]
     Active Substance: VALSARTAN
     Indication: PRODUCT USED FOR UNKNOWN INDICATION
     Dosage: UNK
     Route: 048
  3. VALSARTAN. [Suspect]
     Active Substance: VALSARTAN
     Indication: HYPERTENSION
     Dosage: 80 MG, QD
     Route: 065
  4. ADALAT [Suspect]
     Active Substance: NIFEDIPINE
     Indication: PRODUCT USED FOR UNKNOWN INDICATION
     Dosage: UNK
     Route: 048
  5. INDAPAMIDE. [Suspect]
     Active Substance: INDAPAMIDE
     Indication: PRODUCT USED FOR UNKNOWN INDICATION
     Dosage: 1.5 MG, QD
     Route: 048

REACTIONS (14)
  - Hypertrophic cardiomyopathy [Unknown]
  - Blood sodium decreased [Unknown]
  - Renal artery stenosis [Recovering/Resolving]
  - Hepatic cyst [Unknown]
  - Blood pressure inadequately controlled [Recovering/Resolving]
  - Left ventricular hypertrophy [Unknown]
  - Electrolyte imbalance [Unknown]
  - Blood potassium decreased [Unknown]
  - Blood chloride decreased [Unknown]
  - Left ventricular dysfunction [Unknown]
  - Arteriosclerosis [Unknown]
  - Aortic arteriosclerosis [Unknown]
  - Degenerative aortic valve disease [Unknown]
  - Hypertension [Unknown]

NARRATIVE: CASE EVENT DATE: 2014
